FAERS Safety Report 8621854 (Version 2)
Quarter: 2012Q4

REPORT INFORMATION
  Report Type: 
  Country: US (occurrence: US)
  Receive Date: 20120619
  Receipt Date: 20120907
  Transmission Date: 20130627
  Serious: Yes (Other)
  Sender: FDA-Public Use
  Company Number: US-BAYER-2012-040346

PATIENT
  Age: 45 Year
  Sex: Female

DRUGS (6)
  1. BETASERON [Suspect]
     Indication: MULTIPLE SCLEROSIS
     Dosage: 8 miu, QOD
     Route: 058
     Dates: start: 20110315
  2. BETASERON [Suspect]
     Indication: MULTIPLE SCLEROSIS
     Dosage: 8 miu, QOD
     Route: 058
  3. ALEVE GELCAP [Concomitant]
  4. CYCLOBENZAPRINE [Concomitant]
     Indication: MUSCLE SPASMS
     Dosage: 15 mg, HS
  5. BACLOFEN [Concomitant]
     Indication: MUSCLE SPASMS
     Dosage: 10 mg, BID
  6. TRIAMTERENE AND HYDROCHLOROTHIAZIDE [Concomitant]
     Indication: OEDEMA PERIPHERAL
     Dosage: 37.5/25

REACTIONS (10)
  - Thyroid neoplasm [None]
  - Thyroid function test abnormal [None]
  - Lymphadenopathy [None]
  - Dysphagia [None]
  - Dyspnoea exertional [None]
  - Weight increased [None]
  - Exfoliative rash [Recovering/Resolving]
  - Skin discolouration [Recovering/Resolving]
  - Choking sensation [None]
  - Hepatic enzyme increased [None]
